FAERS Safety Report 9055657 (Version 2)
Quarter: 2013Q1

REPORT INFORMATION
  Report Type: Spontaneous
  Country: US (occurrence: US)
  Receive Date: 20130206
  Receipt Date: 20130311
  Transmission Date: 20140127
  Serious: Yes (Other)
  Sender: FDA-Public Use
  Company Number: US-PFIZER INC-2013041188

PATIENT
  Age: 56 Year
  Sex: Male
  Weight: 70.3 kg

DRUGS (2)
  1. VIAGRA [Suspect]
     Indication: ERECTILE DYSFUNCTION
     Dosage: 100 MG, DAILY
     Route: 048
     Dates: start: 201208
  2. PERCOCET [Concomitant]
     Indication: PAIN
     Dosage: 5 MG, AS NEEDED

REACTIONS (2)
  - Musculoskeletal disorder [Unknown]
  - Drug effect decreased [Unknown]
